FAERS Safety Report 4685990-4 (Version None)
Quarter: 2005Q2

REPORT INFORMATION
  Report Type: 
  Country: None (occurrence: None)
  Receive Date: 20050607
  Receipt Date: 20050607
  Transmission Date: 20051028
  Serious: Yes (Other)
  Sender: FDA-Public Use
  Company Number: None

PATIENT
  Age: 5 Year
  Sex: Female
  Weight: 20.4119 kg

DRUGS (3)
  1. JR. TYLENOL  160MG  MCNEIL [Suspect]
     Indication: HEADACHE
     Dosage: 1 TABLET
  2. JR. TYLENOL  160MG  MCNEIL [Suspect]
     Indication: MULTIPLE ALLERGIES
     Dosage: 1 TABLET
  3. JR. TYLENOL  160MG  MCNEIL [Suspect]
     Indication: NASOPHARYNGITIS
     Dosage: 1 TABLET

REACTIONS (4)
  - FATIGUE [None]
  - LISTLESS [None]
  - TREMOR [None]
  - VOMITING [None]
